FAERS Safety Report 6668186-6 (Version None)
Quarter: 2010Q2

REPORT INFORMATION
  Report Type: 
  Country: None (occurrence: None)
  Receive Date: 20100405
  Receipt Date: 20100405
  Transmission Date: 20101027
  Serious: Yes (Life-Threatening)
  Sender: FDA-Public Use
  Company Number: None

PATIENT
  Age: 48 Year
  Sex: Female
  Weight: 56.6996 kg

DRUGS (1)
  1. WELLBUTRIN XL [Suspect]
     Indication: BIPOLAR II DISORDER
     Dosage: 450 MG DAILY PO
     Route: 048
     Dates: start: 20100101, end: 20100115

REACTIONS (9)
  - ANGER [None]
  - APPARENT LIFE THREATENING EVENT [None]
  - DEPRESSION [None]
  - IMPAIRED WORK ABILITY [None]
  - PARTNER STRESS [None]
  - PRODUCT QUALITY ISSUE [None]
  - PRODUCT SUBSTITUTION ISSUE [None]
  - SUICIDAL BEHAVIOUR [None]
  - SUICIDAL IDEATION [None]
